FAERS Safety Report 20346590 (Version 1)
Quarter: 2022Q1

REPORT INFORMATION
  Report Type: Spontaneous
  Country: US (occurrence: None)
  Receive Date: 20220115
  Receipt Date: 20220115
  Transmission Date: 20220423
  Serious: Yes (Life-Threatening, Hospitalization, Other)
  Sender: FDA-Public Use
  Company Number: None

PATIENT
  Age: 79 Day
  Sex: Female
  Weight: 54 kg

DRUGS (18)
  1. VALSARTAN [Suspect]
     Active Substance: VALSARTAN
     Indication: Hypertension
     Route: 058
     Dates: start: 20211227, end: 20220115
  2. VALSARTAN [Suspect]
     Active Substance: VALSARTAN
     Indication: Diabetes mellitus
  3. LISINOPRIL [Suspect]
     Active Substance: LISINOPRIL
     Indication: Hypertension
     Route: 058
     Dates: start: 20211227, end: 20220115
  4. LISINOPRIL [Suspect]
     Active Substance: LISINOPRIL
     Indication: Diabetes mellitus
  5. CARVEDILOL [Concomitant]
     Active Substance: CARVEDILOL
  6. CINACALCET [Concomitant]
     Active Substance: CINACALCET
  7. DOCUSATE [Concomitant]
     Active Substance: DOCUSATE
  8. LOVENOX [Concomitant]
     Active Substance: ENOXAPARIN SODIUM
  9. ETHANOL TOPICAL [Concomitant]
  10. LANTUS [Concomitant]
     Active Substance: INSULIN GLARGINE
  11. INSULIN LISPRO [Concomitant]
     Active Substance: INSULIN LISPRO
  12. HUMALOG [Concomitant]
     Active Substance: INSULIN LISPRO
  13. LISINOPRIL [Concomitant]
     Active Substance: LISINOPRIL
  14. POLYETHYLENE GLYCOL [Concomitant]
     Active Substance: POLYETHYLENE GLYCOL
  15. SENOKOT [Concomitant]
     Active Substance: SENNOSIDES
  16. TYLENOL [Concomitant]
     Active Substance: ACETAMINOPHEN
  17. UNSPECIFIED INGREDIENT [Concomitant]
     Active Substance: UNSPECIFIED INGREDIENT
  18. FOLEY [Concomitant]

REACTIONS (9)
  - Fall [None]
  - Injury [None]
  - Cerebral haemorrhage [None]
  - General physical health deterioration [None]
  - Speech disorder [None]
  - Confusional state [None]
  - Urinary tract infection [None]
  - Dysuria [None]
  - Thrombosis [None]

NARRATIVE: CASE EVENT DATE: 20211227
